FAERS Safety Report 24331310 (Version 1)
Quarter: 2024Q3

REPORT INFORMATION
  Report Type: Report from Study
  Country: US (occurrence: US)
  Receive Date: 20240918
  Receipt Date: 20240918
  Transmission Date: 20241016
  Serious: Yes (Death, Other)
  Sender: SANDOZ
  Company Number: US-SANDOZ-SDZ2024US080750

PATIENT
  Sex: Female

DRUGS (1)
  1. ZARXIO [Suspect]
     Active Substance: FILGRASTIM-SNDZ
     Indication: Non-Hodgkin^s lymphoma
     Dosage: 300 UG QD
     Route: 058
     Dates: start: 20240803, end: 20240824

REACTIONS (1)
  - Death [Fatal]
